FAERS Safety Report 4886927-5 (Version None)
Quarter: 2006Q1

REPORT INFORMATION
  Report Type: 
  Country: None (occurrence: None)
  Receive Date: 20060118
  Receipt Date: 20060104
  Transmission Date: 20060701
  Serious: Yes (Other)
  Sender: FDA-Public Use
  Company Number: USA050597759

PATIENT
  Age: 58 Year
  Sex: Female
  Weight: 50.9 kg

DRUGS (5)
  1. FORTEO [Suspect]
     Indication: OSTEOPOROSIS
     Dosage: 20 UG, DAILY (1/D)
     Dates: start: 20041001
  2. ZOCOR [Concomitant]
  3. FLEXERIL [Concomitant]
  4. TRAZODONE (TRAZODONE) [Concomitant]
  5. FORTEO PEN (FORTEO PEN) PEN DISPOSABLE [Concomitant]

REACTIONS (5)
  - ABDOMINAL PAIN LOWER [None]
  - ANTINUCLEAR ANTIBODY POSITIVE [None]
  - BLOOD HUMAN CHORIONIC GONADOTROPIN INCREASED [None]
  - HIV TEST POSITIVE [None]
  - UTERINE LEIOMYOMA [None]
